FAERS Safety Report 9719341 (Version 2)
Quarter: 2013Q4

REPORT INFORMATION
  Report Type: Spontaneous
  Country: GB (occurrence: GB)
  Receive Date: 20131127
  Receipt Date: 20131218
  Transmission Date: 20140711
  Serious: Yes (Death)
  Sender: FDA-Public Use
  Company Number: GB-ROCHE-1310043

PATIENT
  Age: 76 Year
  Sex: Female
  Weight: 60 kg

DRUGS (5)
  1. ROACTEMRA [Suspect]
     Indication: RHEUMATOID ARTHRITIS
     Route: 041
     Dates: start: 201210, end: 201301
  2. ROACTEMRA [Suspect]
     Route: 041
     Dates: start: 201308, end: 201309
  3. LANSOPRAZOLE [Concomitant]
     Route: 048
     Dates: start: 2006
  4. TRAMADOL [Concomitant]
     Route: 048
     Dates: start: 2010
  5. CELECOXIB [Concomitant]
     Route: 048
     Dates: start: 2009

REACTIONS (1)
  - Glioblastoma [Fatal]
